FAERS Safety Report 7778456-6 (Version None)
Quarter: 2011Q3

REPORT INFORMATION
  Report Type: 
  Country: None (occurrence: None)
  Receive Date: 20110926
  Receipt Date: 20110920
  Transmission Date: 20111222
  Serious: Yes (Hospitalization)
  Sender: FDA-Public Use
  Company Number: JP-GLAXOSMITHKLINE-B0739735A

PATIENT
  Sex: Male

DRUGS (8)
  1. ACETAMINOPHEN [Suspect]
     Indication: PYREXIA
     Dates: start: 20110721, end: 20110728
  2. KETOTIFEN FUMARATE [Suspect]
     Indication: RASH
     Dosage: 2MG PER DAY
     Route: 048
     Dates: start: 20110721, end: 20110728
  3. VALPROATE SODIUM [Suspect]
     Indication: EPILEPSY
     Dosage: 600MG PER DAY
     Route: 048
     Dates: start: 20110603
  4. FK [Concomitant]
     Indication: NAUSEA
     Dosage: 3.9MG PER DAY
     Route: 048
     Dates: start: 20110609
  5. DIAZEPAM [Concomitant]
     Indication: EPILEPSY
     Dosage: 6MG PER DAY
     Route: 048
     Dates: start: 20110610
  6. ETISEDAN [Concomitant]
     Indication: MENTAL DISORDER
     Dosage: 1.5MG PER DAY
     Route: 048
     Dates: start: 20110609
  7. LAMICTAL [Suspect]
     Indication: EPILEPSY
     Dosage: 25MG ALTERNATE DAYS
     Route: 048
     Dates: start: 20110609, end: 20110720
  8. GLYCYRRHIZIN + AMINOACETIC ACID + L-CYSTEINE HYDROCHLORIDE [Suspect]
     Indication: RASH
     Route: 048
     Dates: start: 20110721, end: 20110728

REACTIONS (9)
  - DRUG RASH WITH EOSINOPHILIA AND SYSTEMIC SYMPTOMS [None]
  - DRUG ERUPTION [None]
  - PRURITUS [None]
  - FACE OEDEMA [None]
  - ANGIOEDEMA [None]
  - OEDEMA MOUTH [None]
  - OCULAR HYPERAEMIA [None]
  - LYMPHADENOPATHY [None]
  - PYREXIA [None]
